FAERS Safety Report 6369879-0 (Version None)
Quarter: 2009Q3

REPORT INFORMATION
  Report Type: 
  Country: None (occurrence: None)
  Receive Date: 20090923
  Receipt Date: 20070622
  Transmission Date: 20100115
  Serious: No
  Sender: FDA-Public Use
  Company Number: US-ASTRAZENECA-2006UW11262

PATIENT
  Age: 18439 Day
  Sex: Male
  Weight: 97.5 kg

DRUGS (7)
  1. SEROQUEL [Suspect]
     Indication: SCHIZOPHRENIA
     Route: 048
     Dates: start: 20010406
  2. SEROQUEL [Suspect]
     Route: 048
     Dates: start: 20040201, end: 20060201
  3. HALDOL [Concomitant]
     Route: 048
     Dates: start: 20020101
  4. TRICOR [Concomitant]
     Route: 065
  5. GLYBURIDE [Concomitant]
     Route: 065
  6. LISINOPRIL [Concomitant]
     Route: 065
  7. JANUVIA [Concomitant]
     Route: 065

REACTIONS (5)
  - DIABETES MELLITUS [None]
  - LIPIDS INCREASED [None]
  - LIVER FUNCTION TEST ABNORMAL [None]
  - SCHIZOPHRENIA [None]
  - TYPE 2 DIABETES MELLITUS [None]
